FAERS Safety Report 11843411 (Version 2)
Quarter: 2015Q4

REPORT INFORMATION
  Report Type: Spontaneous
  Country: US (occurrence: US)
  Receive Date: 20151217
  Receipt Date: 20151230
  Transmission Date: 20160305
  Serious: No
  Sender: FDA-Public Use
  Company Number: US-AMGEN-USASP2015130120

PATIENT
  Age: 47 Year
  Sex: Female

DRUGS (1)
  1. ENBREL [Suspect]
     Active Substance: ETANERCEPT
     Indication: RHEUMATOID ARTHRITIS
     Dosage: 50 MG, ONCE WEEKLY
     Route: 065
     Dates: start: 201510

REACTIONS (4)
  - Injection site discomfort [Unknown]
  - Muscle spasms [Unknown]
  - Injection site reaction [Unknown]
  - Fat tissue increased [Unknown]

NARRATIVE: CASE EVENT DATE: 2015
